FAERS Safety Report 8535294-4 (Version None)
Quarter: 2012Q3

REPORT INFORMATION
  Report Type: 
  Country: None (occurrence: None)
  Receive Date: 20120725
  Receipt Date: 20120716
  Transmission Date: 20120928
  Serious: Yes (Death)
  Sender: FDA-Public Use
  Company Number: US-009507513-2012SP034903

PATIENT

DRUGS (2)
  1. NEXPLANON [Suspect]
     Indication: PRODUCT USED FOR UNKNOWN INDICATION
  2. NEXPLANON [Suspect]

REACTIONS (1)
  - MEDICAL DEVICE COMPLICATION [None]
